FAERS Safety Report 20392160 (Version 5)
Quarter: 2022Q1

REPORT INFORMATION
  Report Type: Report from Study
  Country: TH (occurrence: TH)
  Receive Date: 20220128
  Receipt Date: 20220302
  Transmission Date: 20220423
  Serious: Yes (Death, Hospitalization, Other)
  Sender: FDA-Public Use
  Company Number: TH-NOVARTISPH-NVSC2022TH017677

PATIENT
  Age: 2 Year
  Sex: Female
  Weight: 12.1 kg

DRUGS (5)
  1. ZOLGENSMA [Suspect]
     Active Substance: ONASEMNOGENE ABEPARVOVEC-XIOI
     Indication: Spinal muscular atrophy
     Dosage: 71 ML, ONCE/SINGLE
     Route: 042
     Dates: start: 20211104, end: 20211104
  2. PREDNISOLONE [Concomitant]
     Active Substance: PREDNISOLONE
     Indication: Transaminases increased
     Dosage: 12 ML 1MKDAY
     Route: 048
     Dates: start: 20211103, end: 20220112
  3. PREDNISOLONE [Concomitant]
     Active Substance: PREDNISOLONE
     Indication: Hepatitis
     Dosage: 6 ML (0.5 MKDAY)
     Route: 048
     Dates: start: 20220112
  4. PREDNISOLONE [Concomitant]
     Active Substance: PREDNISOLONE
     Dosage: UNK (0.5 MKDAY)
     Route: 048
     Dates: start: 20220113, end: 20220118
  5. PREDNISOLONE [Concomitant]
     Active Substance: PREDNISOLONE
     Dosage: SIG 0.25 MKD OP OD
     Route: 048
     Dates: start: 20220119, end: 20220124

REACTIONS (26)
  - Cardiac arrest [Fatal]
  - Obstructive airways disorder [Not Recovered/Not Resolved]
  - Pupil fixed [Unknown]
  - Heart rate increased [Unknown]
  - Coma scale abnormal [Unknown]
  - Blood pH decreased [Unknown]
  - PCO2 increased [Unknown]
  - Base excess increased [Unknown]
  - Prothrombin time prolonged [Unknown]
  - International normalised ratio increased [Unknown]
  - Blood alkaline phosphatase increased [Unknown]
  - Haemoglobin decreased [Unknown]
  - Haemoglobin increased [Unknown]
  - Haematocrit increased [Unknown]
  - Platelet count increased [Unknown]
  - White blood cell count increased [Unknown]
  - Neutrophil count decreased [Unknown]
  - Neutrophil count increased [Unknown]
  - Electrocardiogram T wave abnormal [Unknown]
  - Pulse pressure decreased [Unknown]
  - Capillary nail refill test abnormal [Unknown]
  - Bilirubin conjugated increased [Unknown]
  - Blood potassium increased [Unknown]
  - Aspartate aminotransferase increased [Unknown]
  - Alanine aminotransferase increased [Unknown]
  - Troponin T increased [Unknown]

NARRATIVE: CASE EVENT DATE: 20220125
